FAERS Safety Report 9121958 (Version 3)
Quarter: 2013Q3

REPORT INFORMATION
  Report Type: Spontaneous
  Country: US (occurrence: US)
  Receive Date: 20130114
  Receipt Date: 20130718
  Transmission Date: 20140515
  Serious: No
  Sender: FDA-Public Use
  Company Number: US-PFIZER INC-2013013372

PATIENT
  Age: 51 Year
  Sex: Female
  Weight: 56.69 kg

DRUGS (6)
  1. LYRICA [Suspect]
     Indication: FIBROMYALGIA
     Dosage: 100 MG, 2X/DAY
     Route: 048
     Dates: start: 2010, end: 2012
  2. LYRICA [Suspect]
     Dosage: 100 MG, 3X/DAY
     Route: 048
     Dates: end: 20130714
  3. CYMBALTA [Concomitant]
     Indication: DEPRESSION
     Dosage: 60 MG, 2X/DAY
  4. PROTONIX [Concomitant]
     Indication: GASTROOESOPHAGEAL REFLUX DISEASE
     Dosage: 40 MG, 2X/DAY
  5. LIALDA [Concomitant]
     Indication: CROHN^S DISEASE
     Dosage: 1.2 G, 2X/DAY
  6. LIALDA [Concomitant]
     Indication: COLITIS ULCERATIVE

REACTIONS (2)
  - Pain [Not Recovered/Not Resolved]
  - Drug ineffective [Unknown]
